FAERS Safety Report 25209869 (Version 1)
Quarter: 2025Q2

REPORT INFORMATION
  Report Type: Spontaneous
  Country: US (occurrence: US)
  Receive Date: 20250417
  Receipt Date: 20250417
  Transmission Date: 20250717
  Serious: No
  Sender: BAYER
  Company Number: US-BAYER-2025A050145

PATIENT
  Sex: Female

DRUGS (1)
  1. BETASERON [Suspect]
     Active Substance: INTERFERON BETA-1B
     Indication: Relapsing-remitting multiple sclerosis

REACTIONS (2)
  - Menstruation irregular [Unknown]
  - Influenza like illness [Unknown]
